FAERS Safety Report 6944473-9 (Version None)
Quarter: 2010Q3

REPORT INFORMATION
  Report Type: 
  Country: None (occurrence: None)
  Receive Date: 20100827
  Receipt Date: 20100817
  Transmission Date: 20110219
  Serious: Yes (Other)
  Sender: FDA-Public Use
  Company Number: US-PFIZER INC-2008040449

PATIENT
  Sex: Female
  Weight: 121 kg

DRUGS (4)
  1. GENOTROPIN [Suspect]
     Indication: GROWTH HORMONE DEFICIENCY
     Dosage: 0.6 MG, 1X/DAY
     Dates: start: 20041001
  2. GENOTROPIN [Suspect]
     Dosage: 0.8 MG, UNK
  3. GENOTROPIN [Suspect]
     Dosage: 1.0 MG, UNK
  4. GENOTROPIN [Suspect]
     Dosage: 1.2 MG, UNK

REACTIONS (6)
  - ALOPECIA [None]
  - CARPAL TUNNEL SYNDROME [None]
  - DIZZINESS [None]
  - DRUG INEFFECTIVE [None]
  - HYPOKALAEMIA [None]
  - URINARY TRACT INFECTION [None]
